FAERS Safety Report 19646385 (Version 1)
Quarter: 2021Q3

REPORT INFORMATION
  Report Type: Spontaneous
  Country: US (occurrence: US)
  Receive Date: 20210802
  Receipt Date: 20210802
  Transmission Date: 20211014
  Serious: Yes (Other)
  Sender: FDA-Public Use
  Company Number: None

PATIENT
  Age: 67 Year
  Sex: Female
  Weight: 90 kg

DRUGS (5)
  1. LOSARTAN. [Concomitant]
     Active Substance: LOSARTAN
  2. LOSARTAN POTASSIUM TABLETS 100MG [Suspect]
     Active Substance: LOSARTAN POTASSIUM
     Indication: HYPERTENSION
     Dosage: ?          QUANTITY:90 TABLET(S);?
     Route: 048
     Dates: start: 20210721
  3. ROSUVASTATIN. [Concomitant]
     Active Substance: ROSUVASTATIN
  4. METOPROLOL ER [Concomitant]
     Active Substance: METOPROLOL SUCCINATE
  5. AMLODIPINE [Concomitant]
     Active Substance: AMLODIPINE BESYLATE

REACTIONS (3)
  - Headache [None]
  - Hypertension [None]
  - Product quality issue [None]

NARRATIVE: CASE EVENT DATE: 20210722
